FAERS Safety Report 7799584-5 (Version None)
Quarter: 2011Q4

REPORT INFORMATION
  Report Type: 
  Country: None (occurrence: None)
  Receive Date: 20111006
  Receipt Date: 20110926
  Transmission Date: 20120403
  Serious: Yes (Hospitalization)
  Sender: FDA-Public Use
  Company Number: US-BAYER-2010-008034

PATIENT
  Age: 33 Year
  Sex: Female
  Weight: 145.58 kg

DRUGS (8)
  1. LEVAQUIN [Concomitant]
     Dosage: 500 MG, QD
     Route: 048
     Dates: start: 20100302
  2. YAZ [Suspect]
     Indication: CONTRACEPTION
  3. ACYCLOVIR [Concomitant]
     Dosage: 200 MG, UNK
     Dates: start: 20100208
  4. CALCIUM CARBONATE [Concomitant]
     Dosage: UNK
     Dates: start: 20100226
  5. OMEPRAZOLE [Concomitant]
     Indication: GASTROOESOPHAGEAL REFLUX DISEASE
     Dosage: 20 MG, BID
  6. YAZ [Suspect]
     Indication: ACNE
     Dosage: UNK
     Route: 048
     Dates: start: 20070120, end: 20100310
  7. DARVOCET-N 50 [Concomitant]
     Indication: PAIN
     Dosage: UNK UNK, Q4HR
     Route: 048
     Dates: start: 20100226
  8. VALTREX [Concomitant]
     Indication: HERPES VIRUS INFECTION
     Dosage: 500 MG, UNK
     Dates: start: 20050101

REACTIONS (4)
  - ANXIETY [None]
  - PAIN [None]
  - EMOTIONAL DISTRESS [None]
  - CHOLECYSTITIS CHRONIC [None]
